FAERS Safety Report 6641377-6 (Version None)
Quarter: 2010Q1

REPORT INFORMATION
  Report Type: 
  Country: None (occurrence: None)
  Receive Date: 20100318
  Receipt Date: 20100312
  Transmission Date: 20100710
  Serious: Yes (Hospitalization)
  Sender: FDA-Public Use
  Company Number: US-ROCHE-639407

PATIENT
  Sex: Female
  Weight: 74.4 kg

DRUGS (28)
  1. PEG-INTERFERON ALFA 2A (RO 25-8310) [Suspect]
     Dosage: LAST DOSE: 05 JUNE 2009 DRUG TEMPORARILY INTERRUPTED: 10 JUNE 2009
     Route: 058
     Dates: start: 20090501, end: 20090610
  2. PEG-INTERFERON ALFA 2A (RO 25-8310) [Suspect]
     Route: 058
     Dates: start: 20090707
  3. RIBAVIRIN [Suspect]
     Dosage: LAST DOSE: 10 JUNE 2009 FREQUENCY: QD
     Route: 048
     Dates: start: 20090501, end: 20090610
  4. RIBAVIRIN [Suspect]
     Route: 048
     Dates: start: 20090707
  5. ASPIRIN [Concomitant]
     Dosage: DRUG REPORTEDAS CHILD ASPIRIN
  6. ATENOLOL [Concomitant]
  7. HUMULIN 70/30 [Concomitant]
     Dosage: TDD REPORTED AS 70/30
  8. IBUPROFEN [Concomitant]
  9. IMITREX [Concomitant]
  10. JANUVIA [Concomitant]
  11. LAMOTRIGINE [Concomitant]
     Dosage: DRUG: LAMICTAL
  12. LISINOPRIL [Concomitant]
  13. PREVACID [Concomitant]
  14. AMITRIPTYLINE HCL [Concomitant]
     Dosage: DRUG: ELAVIL
  15. FENOFIBRATE [Concomitant]
  16. RAMIPRIL [Concomitant]
  17. ESCITALOPRAM [Concomitant]
     Dosage: DRUG REPORTED AS LEXAPRO
     Dates: start: 20090929
  18. ACTOS [Concomitant]
  19. LANTUS [Concomitant]
  20. LORATADINE [Concomitant]
     Dosage: DRUG: CLARITIN
  21. LORATADINE [Concomitant]
     Dosage: DRUG: LORATAB, TDD: 20
  22. ULTRAM [Concomitant]
  23. LEXAPRO [Concomitant]
  24. NOVOLOG [Concomitant]
     Dosage: DRUG: NOVOLOG SLIDING SCALE, TDD: 1 UINT
  25. K-DUR [Concomitant]
  26. LOPRESSOR [Concomitant]
  27. PHENERGAN HCL [Concomitant]
  28. SUMATRIPTAN SUCCINATE [Concomitant]

REACTIONS (3)
  - BLOOD GLUCOSE INCREASED [None]
  - DIABETIC KETOACIDOSIS [None]
  - HYPERGLYCAEMIA [None]
